FAERS Safety Report 6933027-6 (Version None)
Quarter: 2010Q3

REPORT INFORMATION
  Report Type: 
  Country: None (occurrence: None)
  Receive Date: 20100818
  Receipt Date: 20100818
  Transmission Date: 20110219
  Serious: No
  Sender: FDA-Public Use
  Company Number: None

PATIENT
  Age: 67 Year
  Sex: Male
  Weight: 71 kg

DRUGS (2)
  1. DIAZEPAM [Suspect]
     Indication: MUSCLE RELAXANT THERAPY
     Dosage: 4 MG TID PO
     Route: 048
     Dates: start: 20100709, end: 20100721
  2. GABAPENTIN [Suspect]
     Indication: MUSCLE RELAXANT THERAPY
     Dosage: 300 MG TID PO
     Route: 048
     Dates: start: 20100709, end: 20100723

REACTIONS (6)
  - CHEST PAIN [None]
  - PULMONARY OEDEMA [None]
  - RESPIRATORY FAILURE [None]
  - SEDATION [None]
  - SIALOADENITIS [None]
  - UNRESPONSIVE TO STIMULI [None]
